FAERS Safety Report 7548984-7 (Version None)
Quarter: 2011Q2

REPORT INFORMATION
  Report Type: 
  Country: None (occurrence: None)
  Receive Date: 20110615
  Receipt Date: 20110601
  Transmission Date: 20111010
  Serious: Yes (Death, Disabling)
  Sender: FDA-Public Use
  Company Number: ES-CELGENEUS-144-50794-11060075

PATIENT
  Age: 80 Year
  Sex: Male

DRUGS (1)
  1. VIDAZA [Suspect]
     Dosage: 75 MILLIGRAM
     Route: 050
     Dates: start: 20100401, end: 20100601

REACTIONS (1)
  - DISEASE PROGRESSION [None]
